FAERS Safety Report 24623030 (Version 1)
Quarter: 2024Q4

REPORT INFORMATION
  Report Type: Report from Study
  Country: IN (occurrence: IN)
  Receive Date: 20241115
  Receipt Date: 20241115
  Transmission Date: 20250114
  Serious: Yes (Death)
  Sender: ROCHE
  Company Number: IN-ROCHE-10000130394

PATIENT
  Sex: Female
  Weight: 56 kg

DRUGS (21)
  1. PHESGO [Suspect]
     Active Substance: HYALURONIDASE-ZZXF\PERTUZUMAB\TRASTUZUMAB
     Indication: HER2 positive breast cancer
     Route: 058
     Dates: start: 20230718, end: 20240924
  2. PACLITAXEL [Suspect]
     Active Substance: PACLITAXEL
     Indication: HER2 positive breast cancer
     Route: 042
     Dates: start: 20230718, end: 20241024
  3. ROSUVASTATIN [Concomitant]
     Active Substance: ROSUVASTATIN
     Indication: Acute coronary syndrome
     Dosage: EVERY BEDTIME
     Route: 048
     Dates: start: 20241106, end: 20241107
  4. CLARITHROMYCIN [Concomitant]
     Active Substance: CLARITHROMYCIN
  5. METRONIDAZOLE [Concomitant]
     Active Substance: METRONIDAZOLE
  6. ONDANSETRON [Concomitant]
     Active Substance: ONDANSETRON
  7. RACECADOTRIL [Concomitant]
     Active Substance: RACECADOTRIL
  8. ASPIRIN [Concomitant]
     Active Substance: ASPIRIN
  9. LASIX [Concomitant]
     Active Substance: FUROSEMIDE
  10. ISOLAZINE [Concomitant]
  11. MEROZA XP [Concomitant]
  12. FRAGMIN [Concomitant]
     Active Substance: DALTEPARIN SODIUM
  13. EUMOSONE [Concomitant]
  14. CLOPIDOGREL [Concomitant]
     Active Substance: CLOPIDOGREL BISULFATE
  15. SPIRONOLACTONE [Concomitant]
     Active Substance: SPIRONOLACTONE
  16. LEVETIRACETAM [Concomitant]
     Active Substance: LEVETIRACETAM
  17. duolin [Concomitant]
  18. RIFAXIMIN [Concomitant]
     Active Substance: RIFAXIMIN
  19. ADEMETIONINE [Concomitant]
     Active Substance: ADEMETIONINE
  20. CADILOSE [Concomitant]
  21. CLOPIDOGREL BISULFATE [Concomitant]
     Active Substance: CLOPIDOGREL BISULFATE

REACTIONS (2)
  - Acute coronary syndrome [Fatal]
  - Cardiogenic shock [Fatal]

NARRATIVE: CASE EVENT DATE: 20241107
